FAERS Safety Report 4407069-9 (Version None)
Quarter: 2004Q3

REPORT INFORMATION
  Report Type: 
  Country: None (occurrence: None)
  Receive Date: 20040723
  Receipt Date: 20040723
  Transmission Date: 20050211
  Serious: Yes (Other)
  Sender: FDA-Public Use
  Company Number: None

PATIENT
  Age: 23 Year
  Sex: Female
  Weight: 90.7194 kg

DRUGS (1)
  1. AVENTIS PASTEUR LIMITED-TUBERSOL TUBERCULIN TESTING SOLUTION [Suspect]
     Dosage: 0.1 CC X1 INTRADERMAL
     Route: 023

REACTIONS (2)
  - INJECTION SITE INDURATION [None]
  - INJECTION SITE RASH [None]
